FAERS Safety Report 20961030 (Version 2)
Quarter: 2022Q2

REPORT INFORMATION
  Report Type: Spontaneous
  Country: IT (occurrence: IT)
  Receive Date: 20220615
  Receipt Date: 20220623
  Transmission Date: 20220721
  Serious: Yes (Other)
  Sender: FDA-Public Use
  Company Number: IT-MINISAL02-871406

PATIENT
  Age: 61 Year
  Sex: Male

DRUGS (3)
  1. LORAZEPAM [Suspect]
     Active Substance: LORAZEPAM
     Indication: Product used for unknown indication
     Dosage: 25 MILLIGRAM (TOTAL)
     Route: 048
     Dates: start: 20220422
  2. QUETIAPINE [Suspect]
     Active Substance: QUETIAPINE
     Indication: Product used for unknown indication
     Dosage: 250 MILLIGRAM (TOTAL)
     Route: 048
     Dates: start: 20220422
  3. VENLAFAXINE [Suspect]
     Active Substance: VENLAFAXINE HYDROCHLORIDE
     Indication: Product used for unknown indication
     Dosage: 1575 MILLIGRAM (TOTAL)
     Route: 048
     Dates: start: 20220422, end: 20220422

REACTIONS (3)
  - Hypotension [Recovered/Resolved with Sequelae]
  - Sopor [Recovered/Resolved with Sequelae]
  - Drug abuse [Recovered/Resolved with Sequelae]

NARRATIVE: CASE EVENT DATE: 20220422
